FAERS Safety Report 9010830 (Version 1)
Quarter: 2013Q1

REPORT INFORMATION
  Report Type: Spontaneous
  Country: US (occurrence: US)
  Receive Date: 20130109
  Receipt Date: 20130109
  Transmission Date: 20140127
  Serious: Yes (Hospitalization)
  Sender: FDA-Public Use
  Company Number: US-UCBSA-074019

PATIENT
  Age: 56 Year
  Sex: Female

DRUGS (2)
  1. CIMZIA [Suspect]
     Indication: CROHN^S DISEASE
     Dosage: TEMPORARILY ON HOLD
     Dates: start: 201202, end: 20120503
  2. 6 MP [Concomitant]
     Indication: CROHN^S DISEASE

REACTIONS (9)
  - Pneumonia legionella [Recovered/Resolved]
  - Pyrexia [Unknown]
  - Cholelithiasis [Unknown]
  - Lymphadenopathy [Unknown]
  - Erythema [Unknown]
  - Local swelling [Unknown]
  - Influenza [Unknown]
  - Vomiting [Unknown]
  - Myalgia [Unknown]
